FAERS Safety Report 14477469 (Version 1)
Quarter: 2018Q1

REPORT INFORMATION
  Report Type: Report from Study
  Country: US (occurrence: US)
  Receive Date: 20180201
  Receipt Date: 20180201
  Transmission Date: 20180509
  Serious: No
  Sender: FDA-Public Use
  Company Number: US-EXELIXIS-CABO-17010678

PATIENT
  Sex: Male

DRUGS (10)
  1. BYDUREON [Concomitant]
     Active Substance: EXENATIDE
  2. LEVEMIR [Concomitant]
     Active Substance: INSULIN DETEMIR
  3. JANUMET [Concomitant]
     Active Substance: METFORMIN HYDROCHLORIDE\SITAGLIPTIN PHOSPHATE
  4. CABOMETYX [Suspect]
     Active Substance: CABOZANTINIB S-MALATE
     Indication: RENAL CANCER
     Dosage: 20 MG, QD
     Route: 048
     Dates: start: 20170707
  5. ATENOLOL. [Concomitant]
     Active Substance: ATENOLOL
  6. GABAPENTIN. [Concomitant]
     Active Substance: GABAPENTIN
  7. OMEPRAZOLE. [Concomitant]
     Active Substance: OMEPRAZOLE
  8. TRAMADOL. [Concomitant]
     Active Substance: TRAMADOL
  9. ZOLPIDEM TARTRATE. [Concomitant]
     Active Substance: ZOLPIDEM TARTRATE
  10. CABOMETYX [Suspect]
     Active Substance: CABOZANTINIB S-MALATE
     Dosage: 40 MG, QD
     Route: 048
     Dates: start: 20170830

REACTIONS (5)
  - Tongue discomfort [Unknown]
  - Dysgeusia [Unknown]
  - Tongue ulceration [Recovered/Resolved]
  - Fatigue [Unknown]
  - Oral discomfort [Unknown]
